FAERS Safety Report 11368875 (Version 1)
Quarter: 2015Q3

REPORT INFORMATION
  Report Type: Spontaneous
  Country: US (occurrence: US)
  Receive Date: 20150812
  Receipt Date: 20150812
  Transmission Date: 20151125
  Serious: Yes (Hospitalization)
  Sender: FDA-Public Use
  Company Number: US-ROCHE-ITM201505IM016511

PATIENT
  Age: 71 Year
  Sex: Male
  Weight: 79.45 kg

DRUGS (1)
  1. ESBRIET [Suspect]
     Active Substance: PIRFENIDONE
     Indication: IDIOPATHIC PULMONARY FIBROSIS
     Dosage: 3 CAPSULES BY MOUTH THREE TIMES A DAY WITH FOOD
     Route: 048
     Dates: start: 20150417

REACTIONS (4)
  - Heart valve incompetence [Unknown]
  - Decreased appetite [Unknown]
  - Malaise [Unknown]
  - Pulmonary fibrosis [Unknown]

NARRATIVE: CASE EVENT DATE: 20150623
